FAERS Safety Report 4283517-2 (Version None)
Quarter: 2004Q1

REPORT INFORMATION
  Report Type: 
  Country: None (occurrence: None)
  Receive Date: 20040120
  Receipt Date: 20030220
  Transmission Date: 20041129
  Serious: Yes (Other)
  Sender: FDA-Public Use
  Company Number: NSADSS2003008334

PATIENT
  Age: 24 Year
  Sex: Female
  Weight: 66.6788 kg

DRUGS (1)
  1. COPPER T MODEL TCU 380A [Suspect]
     Indication: INTRA-UTERINE CONTRACEPTIVE DEVICE INSERTION
     Dosage: INTRAUTERINE
     Route: 015
     Dates: start: 20021127, end: 20030211

REACTIONS (2)
  - ABORTION [None]
  - SMEAR CERVIX ABNORMAL [None]
